FAERS Safety Report 8911517 (Version 2)
Quarter: 2013Q3

REPORT INFORMATION
  Report Type: Spontaneous
  Country: US (occurrence: US)
  Receive Date: 20121116
  Receipt Date: 20130705
  Transmission Date: 20140515
  Serious: No
  Sender: FDA-Public Use
  Company Number: US-009507513-1211USA005768

PATIENT
  Age: 18 Year
  Sex: Female
  Weight: 74.38 kg

DRUGS (1)
  1. NEXPLANON [Suspect]
     Indication: CONTRACEPTION
     Dosage: 1 ROD, UNK
     Route: 059
     Dates: start: 20120716, end: 20130206

REACTIONS (3)
  - Device breakage [Recovered/Resolved]
  - Device dislocation [Recovered/Resolved]
  - Product quality issue [Unknown]
